FAERS Safety Report 9447695 (Version 1)
Quarter: 2013Q3

REPORT INFORMATION
  Report Type: Spontaneous
  Country: US (occurrence: US)
  Receive Date: 20130808
  Receipt Date: 20130808
  Transmission Date: 20140515
  Serious: Yes (Hospitalization, Other)
  Sender: FDA-Public Use
  Company Number: US-BAYER-2013-092203

PATIENT
  Age: 12 Year
  Sex: Male

DRUGS (3)
  1. NEXAVAR [Suspect]
     Indication: HEPATOCELLULAR CARCINOMA
     Dosage: 400 MG AM AND 200 MG PM
     Route: 048
  2. NEXAVAR [Suspect]
     Indication: HEPATOCELLULAR CARCINOMA
     Dosage: 200 MG, BID
     Route: 048
  3. YTTRIUM (90 Y) [Suspect]
     Indication: HEPATOCELLULAR CARCINOMA

REACTIONS (10)
  - Tumour haemorrhage [Recovered/Resolved]
  - Abdominal pain [None]
  - Transaminases increased [None]
  - Pancreatitis [None]
  - Thrombocytopenia [Recovering/Resolving]
  - Hyperbilirubinaemia [None]
  - Thrombocytopenia [None]
  - Fatigue [None]
  - Diarrhoea [None]
  - Decreased appetite [None]
